FAERS Safety Report 6511355-6 (Version None)
Quarter: 2009Q4

REPORT INFORMATION
  Report Type: 
  Country: None (occurrence: None)
  Receive Date: 20091222
  Receipt Date: 20090304
  Transmission Date: 20100525
  Serious: No
  Sender: FDA-Public Use
  Company Number: US-ASTRAZENECA-2009UW05848

PATIENT
  Age: 69 Year
  Sex: Female
  Weight: 61.2 kg

DRUGS (3)
  1. CRESTOR [Suspect]
     Route: 048
     Dates: start: 20090218
  2. AMLODIPINE [Concomitant]
     Indication: HYPERTENSION
  3. FIORINAL [Concomitant]
     Indication: MIGRAINE

REACTIONS (1)
  - RASH MACULAR [None]
